FAERS Safety Report 5805610-2 (Version None)
Quarter: 2008Q3

REPORT INFORMATION
  Report Type: 
  Country: None (occurrence: None)
  Receive Date: 20080710
  Receipt Date: 20080630
  Transmission Date: 20090109
  Serious: Yes (Hospitalization)
  Sender: FDA-Public Use
  Company Number: US-KINGPHARMUSA00001-K200800490

PATIENT

DRUGS (32)
  1. ALTACE [Suspect]
     Dosage: 5 MG, BID
     Dates: start: 20071231, end: 20080416
  2. ALTACE [Suspect]
     Dosage: }1 MONTH PRIOR THE STUDY START
     Dates: start: 20070101, end: 20071220
  3. ALTACE [Suspect]
     Dosage: UNK, UNK
     Dates: start: 20071220, end: 20071225
  4. ALTACE [Suspect]
     Dosage: 1.25 MG, BID
     Dates: start: 20071227, end: 20071229
  5. ALTACE [Suspect]
     Dosage: UNK, UNK
     Dates: start: 20071230, end: 20071230
  6. STUDY DRUG CODE UNBROKEN [Concomitant]
     Indication: ACUTE CORONARY SYNDROME
     Route: 048
     Dates: start: 20071221
  7. ALDACTONE [Concomitant]
     Dates: start: 20071221, end: 20071230
  8. ALDACTONE [Concomitant]
     Dates: start: 20080103
  9. CARLOC [Concomitant]
     Dates: start: 20071222, end: 20071223
  10. CARLOC [Concomitant]
     Dates: start: 20071223, end: 20071224
  11. CARLOC [Concomitant]
     Dates: start: 20071225
  12. ZOLPIDEM TARTRATE [Concomitant]
     Dates: start: 20080403
  13. METOLAZONE [Concomitant]
     Dates: start: 20080306, end: 20080313
  14. ECOSPRIN [Concomitant]
     Dates: start: 20071220, end: 20071220
  15. ECOSPRIN [Concomitant]
     Dates: start: 20071221, end: 20071227
  16. ECOSPRIN [Concomitant]
     Dates: start: 20071228
  17. ATORVASTATIN CALCIUM [Concomitant]
     Dates: start: 20071101
  18. ATORVASTATIN CALCIUM [Concomitant]
     Dates: start: 20071223, end: 20071224
  19. ATORVASTATIN CALCIUM [Concomitant]
     Dates: start: 20071223, end: 20071224
  20. LASIX [Concomitant]
     Dates: start: 20071221, end: 20071222
  21. LASIX [Concomitant]
     Dates: start: 20071223, end: 20071224
  22. LASIX [Concomitant]
     Dates: start: 20071225, end: 20071225
  23. LASIX [Concomitant]
     Dates: start: 20071227, end: 20071230
  24. LASIX [Concomitant]
     Dates: start: 20071231
  25. NETILMICIN SULFATE [Concomitant]
     Dates: start: 20080425, end: 20080502
  26. CEPHALEXIN [Concomitant]
     Dates: start: 20080409, end: 20080414
  27. HYDRALAZINE HCL [Concomitant]
     Dates: start: 20080101, end: 20080101
  28. HYDRALAZINE HCL [Concomitant]
     Dates: start: 20080419
  29. HYDRALAZINE HCL [Concomitant]
  30. HYDRALAZINE HCL [Concomitant]
  31. HYDRALAZINE HCL [Concomitant]
     Dates: start: 20071227, end: 20071229
  32. HYDRALAZINE HCL [Concomitant]
     Dates: start: 20071227, end: 20071229

REACTIONS (4)
  - CARDIAC FAILURE [None]
  - DYSPNOEA [None]
  - RENAL FAILURE ACUTE [None]
  - URINARY TRACT INFECTION [None]
